FAERS Safety Report 23623207 (Version 1)
Quarter: 2024Q1

REPORT INFORMATION
  Report Type: Report from Study
  Country: CA (occurrence: CA)
  Receive Date: 20240312
  Receipt Date: 20240312
  Transmission Date: 20240410
  Serious: Yes (Hospitalization)
  Sender: FDA-Public Use
  Company Number: CA-ELI_LILLY_AND_COMPANY-CA202403000361

PATIENT
  Age: 42 Year
  Sex: Female

DRUGS (1)
  1. TALTZ [Suspect]
     Active Substance: IXEKIZUMAB
     Indication: Product used for unknown indication
     Dosage: 80 MG, UNKNOWN
     Route: 058
     Dates: start: 20230320

REACTIONS (3)
  - External ear cellulitis [Recovering/Resolving]
  - Pneumonia [Recovering/Resolving]
  - Bronchitis [Recovering/Resolving]
